FAERS Safety Report 9668253 (Version 1)
Quarter: 2013Q4

REPORT INFORMATION
  Report Type: Spontaneous
  Country: US (occurrence: US)
  Receive Date: 20131104
  Receipt Date: 20131104
  Transmission Date: 20140711
  Serious: Yes (Hospitalization, Other)
  Sender: FDA-Public Use
  Company Number: US-GILEAD-2013-0086969

PATIENT
  Age: 79 Year
  Sex: Male

DRUGS (2)
  1. LETAIRIS [Suspect]
     Indication: PULMONARY HYPERTENSION
     Dosage: 10 MG, QD
     Route: 048
     Dates: start: 20130213
  2. SILDENAFIL [Concomitant]
     Indication: PULMONARY HYPERTENSION

REACTIONS (3)
  - Loss of consciousness [Not Recovered/Not Resolved]
  - Faeces discoloured [Unknown]
  - Anaemia [Unknown]
